FAERS Safety Report 8709498 (Version 2)
Quarter: 2012Q4

REPORT INFORMATION
  Report Type: Spontaneous
  Country: US (occurrence: None)
  Receive Date: 20120720
  Receipt Date: 20120905
  Transmission Date: 20130627
  Serious: Yes (Hospitalization)
  Sender: FDA-Public Use
  Company Number: KV201200136

PATIENT
  Age: 35 Year
  Sex: Female

DRUGS (1)
  1. MAKENA [Suspect]
     Indication: PREMATURE DELIVERY
     Route: 030

REACTIONS (4)
  - Cervix haemorrhage uterine [None]
  - Maternal exposure during pregnancy [None]
  - Galactorrhoea [None]
  - Injection site pain [None]
